FAERS Safety Report 8371993-5 (Version None)
Quarter: 2012Q2

REPORT INFORMATION
  Report Type: 
  Country: None (occurrence: None)
  Receive Date: 20120518
  Receipt Date: 20120427
  Transmission Date: 20120825
  Serious: Yes (Hospitalization, Other)
  Sender: FDA-Public Use
  Company Number: JP-ROCHE-1068639

PATIENT
  Age: 55 Year
  Sex: Female

DRUGS (6)
  1. PEGASYS [Suspect]
     Indication: HEPATITIS C
     Route: 042
     Dates: start: 20120131, end: 20120402
  2. TORSEMIDE [Suspect]
     Indication: FACE OEDEMA
     Route: 048
     Dates: start: 20120326, end: 20120405
  3. COPEGUS [Suspect]
     Dates: start: 20120409
  4. COPEGUS [Suspect]
     Indication: HEPATITIS C
     Route: 048
     Dates: start: 20120131, end: 20120408
  5. PEGASYS [Suspect]
     Dates: start: 20120409
  6. TELAPREVIR [Suspect]
     Indication: HEPATITIS C
     Route: 048
     Dates: start: 20120131, end: 20120327

REACTIONS (6)
  - VOMITING [None]
  - NAUSEA [None]
  - PRURITUS [None]
  - HYPOKALAEMIA [None]
  - DIZZINESS [None]
  - FACE OEDEMA [None]
